FAERS Safety Report 10652790 (Version 5)
Quarter: 2016Q2

REPORT INFORMATION
  Report Type: Spontaneous
  Country: JP (occurrence: JP)
  Receive Date: 20141215
  Receipt Date: 20160421
  Transmission Date: 20160815
  Serious: Yes (Death, Hospitalization, Other)
  Sender: FDA-Public Use
  Company Number: JP-PFIZER INC-2014340928

PATIENT
  Age: 76 Year
  Sex: Male
  Weight: 66 kg

DRUGS (6)
  1. CELECOX [Suspect]
     Active Substance: CELECOXIB
     Indication: OSTEOARTHRITIS
     Dosage: 100 MG, 2X/DAY
     Route: 048
     Dates: start: 20141113, end: 20141116
  2. BAYASPIRIN [Concomitant]
     Active Substance: ASPIRIN
     Dosage: 100 MG, UNK
     Dates: start: 20130319, end: 20141127
  3. TAMBOCOR [Concomitant]
     Active Substance: FLECAINIDE ACETATE
     Dosage: 50 MG, UNK
     Dates: start: 20130319, end: 20141127
  4. CRESTOR [Concomitant]
     Active Substance: ROSUVASTATIN CALCIUM
     Dosage: 5 MG, UNK
     Dates: start: 20130319, end: 20141127
  5. ARTIST [Concomitant]
     Active Substance: CARVEDILOL
     Dosage: 2.5 MG, UNK
     Dates: start: 20130319, end: 20141127
  6. DEPAS [Concomitant]
     Active Substance: ETIZOLAM
     Dosage: 0.5 MG, UNK
     Dates: start: 20130319, end: 20141127

REACTIONS (1)
  - Interstitial lung disease [Fatal]

NARRATIVE: CASE EVENT DATE: 20141114
